FAERS Safety Report 6699976-1 (Version None)
Quarter: 2010Q2

REPORT INFORMATION
  Report Type: 
  Country: None (occurrence: None)
  Receive Date: 20100428
  Receipt Date: 20100419
  Transmission Date: 20101027
  Serious: Yes (Other)
  Sender: FDA-Public Use
  Company Number: PHHY2010US22028

PATIENT
  Sex: Male
  Weight: 178 kg

DRUGS (5)
  1. RECLAST [Suspect]
     Indication: OSTEOPOROSIS
     Dosage: UNK
     Dates: start: 20100402
  2. TYLENOL-500 [Concomitant]
     Dosage: 1000 MG, UNK
  3. NAPROXEN [Concomitant]
  4. LEXAPRO [Concomitant]
     Dosage: 10 MG, QD
  5. TESTOSTERONE [Concomitant]
     Dosage: Q WEEKLY
     Route: 030

REACTIONS (13)
  - ARTHRALGIA [None]
  - EYE INFLAMMATION [None]
  - FOOT FRACTURE [None]
  - HEADACHE [None]
  - INFLUENZA LIKE ILLNESS [None]
  - MUSCULOSKELETAL CHEST PAIN [None]
  - MUSCULOSKELETAL PAIN [None]
  - MUSCULOSKELETAL STIFFNESS [None]
  - NECK PAIN [None]
  - NEURALGIA [None]
  - PAIN [None]
  - PAIN IN EXTREMITY [None]
  - RIB FRACTURE [None]
